FAERS Safety Report 4604122-1 (Version None)
Quarter: 2005Q1

REPORT INFORMATION
  Report Type: 
  Country: None (occurrence: None)
  Receive Date: 20050309
  Receipt Date: 20050309
  Transmission Date: 20050727
  Serious: Yes (Death, Hospitalization, Other)
  Sender: FDA-Public Use
  Company Number: None

PATIENT
  Age: 48 Year
  Sex: Male
  Weight: 65 kg

DRUGS (7)
  1. WARFARIN [Suspect]
     Indication: MITRAL VALVE REPLACEMENT
     Dosage: 4 MG PO QHS
     Route: 048
  2. THIAMINE [Concomitant]
  3. DIOVAN [Concomitant]
  4. RISPERDAL [Concomitant]
  5. LOPRESSOR [Concomitant]
  6. PHOSLO [Concomitant]
  7. NORVASC [Concomitant]

REACTIONS (10)
  - CATHETER SITE DISCHARGE [None]
  - CONVULSION [None]
  - FAECAL OCCULT BLOOD POSITIVE [None]
  - FALL [None]
  - INTERNATIONAL NORMALISED RATIO INCREASED [None]
  - LOSS OF CONSCIOUSNESS [None]
  - MENTAL STATUS CHANGES [None]
  - PAIN [None]
  - PROTHROMBIN TIME PROLONGED [None]
  - SUBDURAL HAEMATOMA [None]
